FAERS Safety Report 25716412 (Version 1)
Quarter: 2025Q3

REPORT INFORMATION
  Report Type: Spontaneous
  Country: US (occurrence: US)
  Receive Date: 20250822
  Receipt Date: 20250822
  Transmission Date: 20251021
  Serious: No
  Sender: BRISTOL-MYERS SQUIBB COMPANY
  Company Number: US-BRISTOL-MYERS SQUIBB COMPANY-2025-116471

PATIENT
  Age: 67 Year
  Sex: Female

DRUGS (2)
  1. ELIQUIS [Suspect]
     Active Substance: APIXABAN
     Indication: Thrombosis
     Dosage: DOSE : 5MG TABLET;     FREQ : 1 TABLET TWICE A DAY
  2. ELIQUIS [Suspect]
     Active Substance: APIXABAN
     Dosage: DOSE : 5MG TABLET;     FREQ : 1 TABLET TWICE A DAY

REACTIONS (2)
  - Product dispensing error [Unknown]
  - Therapy interrupted [Unknown]
